FAERS Safety Report 9803977 (Version 2)
Quarter: 2014Q1

REPORT INFORMATION
  Report Type: Spontaneous
  Country: US (occurrence: US)
  Receive Date: 20140108
  Receipt Date: 20140108
  Transmission Date: 20141002
  Serious: No
  Sender: FDA-Public Use
  Company Number: US-009507513-1111USA01425

PATIENT
  Sex: Male

DRUGS (4)
  1. PROPECIA [Suspect]
     Indication: ALOPECIA
     Dosage: 1 MG, UNK
     Route: 048
     Dates: start: 2008, end: 2011
  2. PROPECIA [Suspect]
     Indication: ANDROGENETIC ALOPECIA
  3. PROSCAR [Suspect]
     Indication: ANDROGENETIC ALOPECIA
     Dosage: 5 MG QUARTERED, 1.25 MG QD
     Route: 048
     Dates: start: 2008, end: 2011
  4. FINASTERIDE [Suspect]
     Indication: ANDROGENETIC ALOPECIA
     Dosage: UNK
     Route: 048
     Dates: start: 2008, end: 2011

REACTIONS (9)
  - Painful ejaculation [Unknown]
  - Groin pain [Unknown]
  - Cognitive disorder [Not Recovered/Not Resolved]
  - Drug administration error [Unknown]
  - Wrong technique in drug usage process [Unknown]
  - Sinusitis [Unknown]
  - Sexual dysfunction [Not Recovered/Not Resolved]
  - Loss of libido [Unknown]
  - Semen volume decreased [Unknown]
